FAERS Safety Report 25459879 (Version 1)
Quarter: 2025Q2

REPORT INFORMATION
  Report Type: Report from Study
  Country: AE (occurrence: AE)
  Receive Date: 20250620
  Receipt Date: 20250620
  Transmission Date: 20250717
  Serious: Yes (Hospitalization, Other)
  Sender: DAIICHI
  Company Number: AE-AstraZeneca-CH-00889874A

PATIENT
  Sex: Female

DRUGS (1)
  1. ENHERTU [Suspect]
     Active Substance: FAM-TRASTUZUMAB DERUXTECAN-NXKI
     Indication: Breast cancer
     Dosage: 400 MG, ONCE EVERY 3 WK
     Route: 042
     Dates: start: 202411, end: 202506

REACTIONS (4)
  - Dyspnoea [Unknown]
  - Pulmonary fibrosis [Unknown]
  - Oxygen saturation decreased [Unknown]
  - Thrombosis [Unknown]

NARRATIVE: CASE EVENT DATE: 20250601
